FAERS Safety Report 6265837-5 (Version None)
Quarter: 2009Q3

REPORT INFORMATION
  Report Type: 
  Country: None (occurrence: None)
  Receive Date: 20090713
  Receipt Date: 20090703
  Transmission Date: 20100115
  Serious: Yes (Other)
  Sender: FDA-Public Use
  Company Number: B0582032A

PATIENT
  Sex: Female

DRUGS (2)
  1. MALARONE [Suspect]
     Dosage: 1UNIT PER DAY
     Route: 048
     Dates: start: 20081001, end: 20080101
  2. KEPPRA [Concomitant]
     Indication: EPILEPSY
     Route: 065
     Dates: start: 20061001

REACTIONS (2)
  - PARTIAL SEIZURES [None]
  - PRE-EXISTING DISEASE [None]
